FAERS Safety Report 25101437 (Version 1)
Quarter: 2025Q1

REPORT INFORMATION
  Report Type: Spontaneous
  Country: US (occurrence: US)
  Receive Date: 20250320
  Receipt Date: 20250320
  Transmission Date: 20250409
  Serious: Yes (Other)
  Sender: TEVA
  Company Number: US-TEVA-VS-3309802

PATIENT
  Age: 80 Year
  Sex: Female

DRUGS (4)
  1. ALPRAZOLAM [Suspect]
     Active Substance: ALPRAZOLAM
     Indication: Anxiety
     Route: 048
  2. SINGULAIR [Concomitant]
     Active Substance: MONTELUKAST SODIUM
     Indication: Product used for unknown indication
     Route: 065
  3. LORATADINE [Suspect]
     Active Substance: LORATADINE
     Indication: Product used for unknown indication
     Route: 065
  4. NIZATIDINE [Suspect]
     Active Substance: NIZATIDINE
     Indication: Gastrooesophageal reflux disease
     Route: 048

REACTIONS (3)
  - Hepatic enzyme abnormal [Unknown]
  - Adverse drug reaction [Unknown]
  - Product after taste [Not Recovered/Not Resolved]
